FAERS Safety Report 8096942-9 (Version None)
Quarter: 2012Q1

REPORT INFORMATION
  Report Type: 
  Country: None (occurrence: None)
  Receive Date: 20120129
  Receipt Date: 20111205
  Transmission Date: 20120608
  Serious: No
  Sender: FDA-Public Use
  Company Number: US-ABBOTT-11P-163-0880736-00

PATIENT
  Sex: Female

DRUGS (3)
  1. HUMIRA [Suspect]
     Dosage: 2 WEEKS LATER 80 MG 2 PENS
  2. HUMIRA [Suspect]
     Indication: CROHN'S DISEASE
     Dosage: 160 MG LOADING DOSE 4 PENS
     Route: 058
     Dates: start: 20110301, end: 20110301
  3. HUMIRA [Suspect]

REACTIONS (1)
  - PNEUMONIA [None]
